FAERS Safety Report 7858840-2 (Version None)
Quarter: 2011Q4

REPORT INFORMATION
  Report Type: 
  Country: None (occurrence: None)
  Receive Date: 20111027
  Receipt Date: 20111020
  Transmission Date: 20120403
  Serious: Yes (Hospitalization)
  Sender: FDA-Public Use
  Company Number: HK-JNJFOC-20111009990

PATIENT
  Age: 41 Year
  Sex: Female

DRUGS (6)
  1. SIMPONI [Suspect]
     Indication: RHEUMATOID ARTHRITIS
     Route: 058
  2. SIMPONI [Suspect]
     Route: 058
     Dates: start: 20110601
  3. SIMPONI [Suspect]
     Route: 058
     Dates: start: 20110701
  4. PREDNISONE [Concomitant]
  5. PEPCIDINE [Concomitant]
  6. LORATADINE [Concomitant]

REACTIONS (2)
  - RASH [None]
  - PRURITUS [None]
